FAERS Safety Report 8000268 (Version 2)
Quarter: 2012Q4

REPORT INFORMATION
  Report Type: Report from Study
  Country: JP (occurrence: JP)
  Receive Date: 20110621
  Receipt Date: 20120905
  Transmission Date: 20130627
  Serious: Yes (Death)
  Sender: FDA-Public Use
  Company Number: JP-GENZYME-THYM-1002530

PATIENT
  Age: 2 Year
  Sex: Female
  Weight: 8 kg

DRUGS (13)
  1. THYMOGLOBULIN [Suspect]
     Indication: BONE MARROW CONDITIONING REGIMEN
     Dosage: 10 mg, qd
     Route: 042
     Dates: start: 20100902, end: 20100905
  2. FLUDARA [Suspect]
     Indication: BONE MARROW CONDITIONING REGIMEN
     Dosage: UNK
     Route: 065
     Dates: start: 20100831, end: 20100905
  3. MESNA [Concomitant]
     Indication: PROPHYLAXIS
     Dosage: UNK
     Route: 065
     Dates: start: 20100902, end: 20100905
  4. ACICLOVIR [Concomitant]
     Indication: INFECTION PROPHYLAXIS
     Dosage: UNK
     Route: 065
     Dates: start: 20100902, end: 20100915
  5. LENOGRASTIM [Concomitant]
     Indication: PREMEDICATION
     Dosage: UNK
     Route: 065
     Dates: start: 20100912, end: 20100914
  6. TACROLIMUS [Concomitant]
     Indication: CONGENITAL APLASTIC ANAEMIA
     Dosage: UNK
     Route: 065
     Dates: start: 20100706, end: 20100914
  7. METHOTREXAT [Concomitant]
     Indication: PROPHYLAXIS
     Dosage: UNK
     Route: 065
     Dates: start: 20100908, end: 20100913
  8. MEROPENEM TRIHYDRATE [Concomitant]
     Indication: INFECTION PROPHYLAXIS
     Dosage: UNK
     Route: 065
     Dates: start: 20100825, end: 20100915
  9. AMIKACIN SULFATE [Concomitant]
     Indication: INFECTION PROPHYLAXIS
     Dosage: UNK
     Route: 065
     Dates: start: 20100825, end: 20100915
  10. SULFAMETHOPRIM [Concomitant]
     Indication: INFECTION PROPHYLAXIS
     Dosage: UNK
     Route: 065
     Dates: start: 20100825, end: 20100830
  11. RED BLOOD CELLS, CONCENTRATED [Concomitant]
     Indication: PROPHYLAXIS
     Dosage: UNK
     Route: 065
     Dates: start: 20100901, end: 20100917
  12. PLATELETS, CONCENTRATED [Concomitant]
     Indication: PROPHYLAXIS
     Dosage: UNK
     Route: 065
     Dates: start: 20100824, end: 20100918
  13. TOTAL BODY RADIATION THERAPY [Concomitant]
     Indication: BONE MARROW CONDITIONING REGIMEN
     Dosage: UNK
     Route: 065
     Dates: start: 20100830, end: 20100830

REACTIONS (3)
  - Pyrexia [Recovered/Resolved]
  - Bronchopulmonary aspergillosis [Fatal]
  - Respiratory failure [None]
